FAERS Safety Report 14819825 (Version 4)
Quarter: 2019Q3

REPORT INFORMATION
  Report Type: Spontaneous
  Country: US (occurrence: US)
  Receive Date: 20180427
  Receipt Date: 20190731
  Transmission Date: 20191004
  Serious: Yes (Other)
  Sender: FDA-Public Use
  Company Number: US-ASTRAZENECA-2018SE50519

PATIENT
  Age: 74 Year
  Sex: Female
  Weight: 68 kg

DRUGS (19)
  1. ASPIRIN. [Concomitant]
     Active Substance: ASPIRIN
  2. NEXIUM 24HR [Suspect]
     Active Substance: ESOMEPRAZOLE MAGNESIUM
     Route: 048
  3. PROTONIX [Suspect]
     Active Substance: PANTOPRAZOLE SODIUM
     Route: 065
  4. PRILOSEC [Suspect]
     Active Substance: OMEPRAZOLE MAGNESIUM
     Indication: GASTROOESOPHAGEAL REFLUX DISEASE
     Route: 048
  5. PRILOSEC OTC [Suspect]
     Active Substance: OMEPRAZOLE MAGNESIUM
     Route: 048
  6. CYMBALTA [Concomitant]
     Active Substance: DULOXETINE HYDROCHLORIDE
  7. VITAMIN D3 [Concomitant]
     Active Substance: CHOLECALCIFEROL
  8. CETRIZINE [Concomitant]
     Active Substance: CETIRIZINE HYDROCHLORIDE
  9. NEXIUM [Suspect]
     Active Substance: ESOMEPRAZOLE MAGNESIUM
     Indication: GASTROOESOPHAGEAL REFLUX DISEASE
     Route: 048
  10. PREVACID [Suspect]
     Active Substance: LANSOPRAZOLE
     Route: 065
  11. PREVACID 24 HR [Suspect]
     Active Substance: LANSOPRAZOLE
     Route: 065
  12. ACETAMINOPHEN. [Concomitant]
     Active Substance: ACETAMINOPHEN
  13. SYNTHROID [Concomitant]
     Active Substance: LEVOTHYROXINE SODIUM
  14. ZANTAC [Concomitant]
     Active Substance: RANITIDINE HYDROCHLORIDE
  15. DEXILANT [Suspect]
     Active Substance: DEXLANSOPRAZOLE
     Route: 065
  16. LISINOPRIL. [Concomitant]
     Active Substance: LISINOPRIL
  17. LEVEMIR [Concomitant]
     Active Substance: INSULIN DETEMIR
  18. ZINC. [Concomitant]
     Active Substance: ZINC
  19. PEPCID COMPLETE [Concomitant]
     Active Substance: CALCIUM CARBONATE\FAMOTIDINE\MAGNESIUM HYDROXIDE

REACTIONS (5)
  - Renal failure [Unknown]
  - Chronic kidney disease [Not Recovered/Not Resolved]
  - Rebound acid hypersecretion [Unknown]
  - Acute kidney injury [Not Recovered/Not Resolved]
  - Renal injury [Unknown]

NARRATIVE: CASE EVENT DATE: 2013
